FAERS Safety Report 10648811 (Version 2)
Quarter: 2015Q1

REPORT INFORMATION
  Report Type: Report from Study
  Country: UZ (occurrence: UZ)
  Receive Date: 20141212
  Receipt Date: 20150120
  Transmission Date: 20150720
  Serious: Yes (Death, Hospitalization, Other)
  Sender: FDA-Public Use
  Company Number: PHHY2014UZ158034

PATIENT
  Sex: Male

DRUGS (2)
  1. GLIVEC [Suspect]
     Active Substance: IMATINIB MESYLATE
     Dosage: 800 MG
     Route: 048
     Dates: end: 201411
  2. GLIVEC [Suspect]
     Active Substance: IMATINIB MESYLATE
     Indication: CHRONIC MYELOID LEUKAEMIA
     Dosage: 400 MG, QD
     Route: 048

REACTIONS (7)
  - Oncologic complication [Fatal]
  - Terminal state [Unknown]
  - Drug ineffective [Unknown]
  - Drug resistance [Fatal]
  - Blast crisis in myelogenous leukaemia [Fatal]
  - Asthenia [Unknown]
  - Pyrexia [Unknown]
